FAERS Safety Report 11148565 (Version 1)
Quarter: 2015Q2

REPORT INFORMATION
  Report Type: Spontaneous
  Country: US (occurrence: US)
  Receive Date: 20150529
  Receipt Date: 20150529
  Transmission Date: 20150821
  Serious: Yes (Other)
  Sender: FDA-Public Use
  Company Number: US-PFIZER INC-2015172117

PATIENT
  Age: 72 Year
  Sex: Female

DRUGS (1)
  1. IBRANCE [Suspect]
     Active Substance: PALBOCICLIB
     Indication: BREAST CANCER
     Dosage: 125 MG, CYCLIC (ONE DAILY FOR 21 DAYS)
     Dates: start: 20150423

REACTIONS (4)
  - Neutropenia [Unknown]
  - Fatigue [Unknown]
  - Pain in extremity [Unknown]
  - Muscle spasms [Unknown]
